FAERS Safety Report 9571168 (Version 1)
Quarter: 2013Q4

REPORT INFORMATION
  Report Type: Report from Study
  Country: IT (occurrence: IT)
  Receive Date: 20131001
  Receipt Date: 20131001
  Transmission Date: 20140711
  Serious: Yes (Death, Life-Threatening, Hospitalization)
  Sender: FDA-Public Use
  Company Number: PHHO2013IT012585

PATIENT
  Age: 27 Year
  Sex: Male
  Weight: 54 kg

DRUGS (13)
  1. NILOTINIB [Suspect]
     Indication: GRAFT VERSUS HOST DISEASE
     Dosage: 300 MG, QD
     Route: 048
     Dates: start: 20120920
  2. PREDNISONE [Concomitant]
     Indication: GRAFT VERSUS HOST DISEASE
     Dosage: 25 MG, UNK
     Route: 048
     Dates: start: 20130307
  3. PREDNISONE [Concomitant]
     Dosage: 17.5 MG, UNK
     Route: 048
     Dates: start: 20130320, end: 20130702
  4. ACYCLOVIR [Concomitant]
     Indication: PROPHYLAXIS
     Dosage: 400 MG, QD
     Route: 048
     Dates: start: 20130314
  5. BACTRIM [Concomitant]
     Indication: PROPHYLAXIS
     Dosage: 160+300 MG THRICE A WEEK
     Route: 048
     Dates: start: 20080520
  6. APO-FOLIC ACID [Concomitant]
     Indication: SUPPLEMENTATION THERAPY
     Dosage: 5 MG THRICE A WEEK
     Dates: start: 20080416
  7. CICLOSPORIN [Concomitant]
     Indication: GRAFT VERSUS HOST DISEASE
     Dosage: 1 ML, QD
     Route: 048
     Dates: start: 20080320
  8. BISOPROLOL [Concomitant]
     Indication: SINUS TACHYCARDIA
     Dosage: 2.5 MG, QD
     Route: 048
     Dates: start: 20121213
  9. ACCOMIN MULTIVITAMIN [Concomitant]
     Indication: SUPPLEMENTATION THERAPY
     Dosage: 1 DF, QD
     Route: 048
     Dates: start: 20120405
  10. ENALAPRIL [Concomitant]
     Indication: PROPHYLAXIS
     Dosage: 9 MG, QD
     Route: 048
     Dates: start: 20130228
  11. ANTRA [Concomitant]
     Indication: PROPHYLAXIS
     Dosage: 20 MG, QD
     Route: 048
     Dates: start: 20130328
  12. ESCITALOPRAM [Concomitant]
     Indication: DEPRESSION
     Dosage: 20 MG, QD
     Route: 048
     Dates: start: 20130620
  13. OLANZAPINE [Concomitant]
     Indication: DECREASED APPETITE
     Dosage: 25 MG, QD
     Route: 048
     Dates: start: 20120620

REACTIONS (2)
  - Respiratory failure [Fatal]
  - Loss of consciousness [Fatal]
